FAERS Safety Report 13369328 (Version 1)
Quarter: 2017Q1

REPORT INFORMATION
  Report Type: Spontaneous
  Country: JP (occurrence: JP)
  Receive Date: 20170324
  Receipt Date: 20170324
  Transmission Date: 20170429
  Serious: Yes (Other)
  Sender: FDA-Public Use
  Company Number: JP-GLAXOSMITHKLINE-JP2017JPN013737

PATIENT
  Age: 10 Year
  Sex: Male

DRUGS (4)
  1. RELENZA [Suspect]
     Active Substance: ZANAMIVIR
     Indication: INFLUENZA
     Dosage: 10 MG, BID
     Route: 055
     Dates: start: 20170130, end: 20170131
  2. NIPOLAZIN [Concomitant]
     Indication: INFLUENZA
     Dosage: 6 MG, PRN
     Dates: start: 20170130
  3. MUCODYNE [Concomitant]
     Active Substance: CARBOCYSTEINE
     Indication: INFLUENZA
     Dosage: 500 MG, TID
     Dates: start: 20170130
  4. MEDICON (DEXTROMETHORPHAN HYDROBROMIDE HYDRATE) [Concomitant]
     Indication: INFLUENZA
     Dosage: 30 MG, TID
     Dates: start: 20170130

REACTIONS (11)
  - Screaming [Recovered/Resolved]
  - Head titubation [Recovered/Resolved]
  - Inappropriate affect [Recovered/Resolved]
  - Feeling abnormal [Recovered/Resolved]
  - Poor quality sleep [Recovered/Resolved]
  - Nausea [Recovered/Resolved]
  - Abnormal behaviour [Recovered/Resolved]
  - Gaze palsy [Recovering/Resolving]
  - Agitation [Recovered/Resolved]
  - Metamorphopsia [Recovering/Resolving]
  - Fear [Recovered/Resolved]

NARRATIVE: CASE EVENT DATE: 20170130
